FAERS Safety Report 25468219 (Version 1)
Quarter: 2025Q2

REPORT INFORMATION
  Report Type: Spontaneous
  Country: GR (occurrence: GR)
  Receive Date: 20250623
  Receipt Date: 20250623
  Transmission Date: 20250716
  Serious: Yes (Death, Other)
  Sender: ADMA BIOLOGICS
  Company Number: GR-ADMA BIOLOGICS INC.-GR-2025ADM000190

PATIENT
  Age: 61 Year
  Sex: Female

DRUGS (3)
  1. HUMAN IMMUNOGLOBULIN G [Suspect]
     Active Substance: HUMAN IMMUNOGLOBULIN G
     Indication: Cytomegalovirus infection
     Route: 042
  2. PREDNISOLONE [Suspect]
     Active Substance: PREDNISOLONE
     Indication: Cytomegalovirus infection
     Dosage: 50 MG, QD FOR 10DAYS
     Route: 065
  3. GANCICLOVIR [Suspect]
     Active Substance: GANCICLOVIR
     Indication: Cytomegalovirus infection
     Dosage: 5 MG/KG, TWICE DAILY
     Route: 042

REACTIONS (5)
  - Sepsis [Fatal]
  - Febrile neutropenia [Fatal]
  - Thrombocytopenia [Fatal]
  - Neutropenia [Fatal]
  - Off label use [Unknown]
